FAERS Safety Report 5618480-2 (Version None)
Quarter: 2008Q1

REPORT INFORMATION
  Report Type: 
  Country: None (occurrence: None)
  Receive Date: 20080207
  Receipt Date: 20080201
  Transmission Date: 20080703
  Serious: Yes (Other)
  Sender: FDA-Public Use
  Company Number: B0502450A

PATIENT
  Age: 58 Year
  Sex: Female

DRUGS (6)
  1. VALTREX [Suspect]
     Indication: HERPES ZOSTER
     Dosage: 1000MG THREE TIMES PER DAY
     Route: 048
     Dates: start: 20080107, end: 20080108
  2. LORCAM [Concomitant]
     Route: 048
  3. ISALON [Concomitant]
     Route: 048
  4. CYANOCOBALAMIN [Concomitant]
     Route: 065
  5. DEPAS [Concomitant]
     Route: 048
  6. UNKNOWN DRUG [Concomitant]
     Route: 065

REACTIONS (4)
  - ANAPHYLACTOID REACTION [None]
  - BLOOD PRESSURE DECREASED [None]
  - DYSPNOEA [None]
  - RASH GENERALISED [None]
